FAERS Safety Report 25164030 (Version 2)
Quarter: 2025Q3

REPORT INFORMATION
  Report Type: Spontaneous
  Country: US (occurrence: US)
  Receive Date: 20250405
  Receipt Date: 20250811
  Transmission Date: 20251021
  Serious: Yes (Hospitalization, Other)
  Sender: TAKEDA
  Company Number: US-TAKEDA-2025TUS034176

PATIENT
  Age: 35 Year
  Sex: Female

DRUGS (2)
  1. VONVENDI [Suspect]
     Active Substance: VON WILLEBRAND FACTOR (RECOMBINANT)
     Indication: Factor VIII deficiency
     Dosage: 7200 INTERNATIONAL UNIT, 2/WEEK
  2. VONVENDI [Suspect]
     Active Substance: VON WILLEBRAND FACTOR (RECOMBINANT)
     Indication: Von Willebrand^s disease

REACTIONS (3)
  - Pneumonia [Recovered/Resolved]
  - Post procedural erythema [Unknown]
  - Procedural pain [Unknown]

NARRATIVE: CASE EVENT DATE: 20250314
